FAERS Safety Report 15807644 (Version 1)
Quarter: 2019Q1

REPORT INFORMATION
  Report Type: Spontaneous
  Country: US (occurrence: US)
  Receive Date: 20190110
  Receipt Date: 20190110
  Transmission Date: 20190417
  Serious: No
  Sender: FDA-Public Use
  Company Number: None

PATIENT
  Age: 55 Year
  Sex: Female

DRUGS (12)
  1. SEROQUEL [Concomitant]
     Active Substance: QUETIAPINE FUMARATE
  2. CALCIUM CARBONATE. [Concomitant]
     Active Substance: CALCIUM CARBONATE
  3. MAGNESIUM [Concomitant]
     Active Substance: MAGNESIUM
  4. MELATONIN [Concomitant]
     Active Substance: MELATONIN
  5. EMGALITY [Suspect]
     Active Substance: GALCANEZUMAB-GNLM
     Indication: MIGRAINE PROPHYLAXIS
     Dosage: ?          OTHER FREQUENCY:LOADING DOSE:ONCE;?
     Route: 058
     Dates: start: 20181221
  6. ADDERALL XR [Concomitant]
     Active Substance: AMPHETAMINE ASPARTATE\AMPHETAMINE SULFATE\DEXTROAMPHETAMINE SACCHARATE\DEXTROAMPHETAMINE SULFATE
  7. RANITIDINE. [Concomitant]
     Active Substance: RANITIDINE
  8. VITAMIN D2 [Concomitant]
     Active Substance: ERGOCALCIFEROL
  9. CLONAZEPAM. [Concomitant]
     Active Substance: CLONAZEPAM
  10. BREO ELLIPTA [Concomitant]
     Active Substance: FLUTICASONE FUROATE\VILANTEROL TRIFENATATE
  11. NASONEX [Concomitant]
     Active Substance: MOMETASONE FUROATE
  12. MYCOPHENOLATE [Concomitant]
     Active Substance: MYCOPHENOLIC ACID

REACTIONS (1)
  - Liver function test increased [None]

NARRATIVE: CASE EVENT DATE: 20190107
